FAERS Safety Report 5473326-0 (Version None)
Quarter: 2007Q4

REPORT INFORMATION
  Report Type: 
  Country: None (occurrence: None)
  Receive Date: 20071001
  Receipt Date: 20070921
  Transmission Date: 20080405
  Serious: Yes (Hospitalization)
  Sender: FDA-Public Use
  Company Number: US-JNJFOC-20070905082

PATIENT
  Sex: Female
  Weight: 57.61 kg

DRUGS (4)
  1. DURAGESIC-100 [Suspect]
     Indication: SURGERY
     Route: 062
  2. HYDROCODONE BITARTRATE [Concomitant]
     Indication: PAIN
     Route: 048
  3. VALIUM [Concomitant]
     Indication: NERVOUSNESS
     Route: 048
  4. BENADRYL [Concomitant]
     Indication: HYPERSENSITIVITY
     Route: 048

REACTIONS (7)
  - DRUG ADMINISTERED AT INAPPROPRIATE SITE [None]
  - FEELING ABNORMAL [None]
  - HYSTERECTOMY [None]
  - IMPAIRED DRIVING ABILITY [None]
  - PHOTOPHOBIA [None]
  - VOMITING [None]
  - WRONG TECHNIQUE IN DRUG USAGE PROCESS [None]
